FAERS Safety Report 8972965 (Version 1)
Quarter: 2012Q4

REPORT INFORMATION
  Report Type: 
  Country: US (occurrence: US)
  Receive Date: 20121218
  Receipt Date: 20121218
  Transmission Date: 20130627
  Serious: No
  Sender: FDA-Public Use
  Company Number: US-BRISTOL-MYERS SQUIBB COMPANY-16458978

PATIENT
  Age: 18 Year
  Sex: Female

DRUGS (1)
  1. ABILIFY TABS 5 MG [Suspect]
     Dosage: dose reduced to 2mg,split the 5mg pill one in the mor and one at night

REACTIONS (2)
  - Depression [Not Recovered/Not Resolved]
  - Expired drug administered [Unknown]
